FAERS Safety Report 13647540 (Version 1)
Quarter: 2017Q2

REPORT INFORMATION
  Report Type: Spontaneous
  Country: US (occurrence: US)
  Receive Date: 20170613
  Receipt Date: 20170613
  Transmission Date: 20170830
  Serious: No
  Sender: FDA-Public Use
  Company Number: US-B.I. PHARMACEUTICALS,INC./RIDGEFIELD-2017-BI-033270

PATIENT
  Age: 15 Year
  Sex: Male

DRUGS (2)
  1. CATAPRES [Suspect]
     Active Substance: CLONIDINE HYDROCHLORIDE
     Indication: COMPLEX REGIONAL PAIN SYNDROME
     Route: 065
  2. GABAPENTIN. [Concomitant]
     Active Substance: GABAPENTIN
     Indication: COMPLEX REGIONAL PAIN SYNDROME
     Route: 065

REACTIONS (4)
  - Peripheral coldness [Recovered/Resolved]
  - Off label use [Recovered/Resolved]
  - Hyperaesthesia [Recovered/Resolved]
  - Pain [Recovered/Resolved]
